FAERS Safety Report 15888972 (Version 5)
Quarter: 2019Q2

REPORT INFORMATION
  Report Type: Spontaneous
  Country: US (occurrence: US)
  Receive Date: 20190130
  Receipt Date: 20190514
  Transmission Date: 20190711
  Serious: Yes (Hospitalization, Other)
  Sender: FDA-Public Use
  Company Number: US-PFIZER INC-2019044834

PATIENT
  Age: 75 Year
  Sex: Female

DRUGS (1)
  1. XELJANZ XR [Suspect]
     Active Substance: TOFACITINIB CITRATE
     Dosage: 11 MG, UNK
     Dates: start: 20190109

REACTIONS (9)
  - Tachycardia [Unknown]
  - Arthralgia [Unknown]
  - Peripheral swelling [Unknown]
  - Hypokalaemia [Unknown]
  - Musculoskeletal pain [Unknown]
  - Back pain [Unknown]
  - Hypomagnesaemia [Unknown]
  - Fatigue [Unknown]
  - Gout [Unknown]
